FAERS Safety Report 16261474 (Version 2)
Quarter: 2019Q2

REPORT INFORMATION
  Report Type: Spontaneous
  Country: US (occurrence: US)
  Receive Date: 20190501
  Receipt Date: 20190513
  Transmission Date: 20190711
  Serious: Yes (Other)
  Sender: FDA-Public Use
  Company Number: US-ASTRAZENECA-2019SE11490

PATIENT

DRUGS (9)
  1. PREVACID [Suspect]
     Active Substance: LANSOPRAZOLE
     Route: 065
  2. VERAPAMIL [Concomitant]
     Active Substance: VERAPAMIL HYDROCHLORIDE
  3. MECLIZINE [Concomitant]
     Active Substance: MECLIZINE HYDROCHLORIDE
  4. MELOXICAM. [Concomitant]
     Active Substance: MELOXICAM
  5. PANTOPRAZOLE SODIUM. [Concomitant]
     Active Substance: PANTOPRAZOLE SODIUM
  6. NEXIUM [Suspect]
     Active Substance: ESOMEPRAZOLE MAGNESIUM
     Route: 048
  7. GLIPIZIDE. [Concomitant]
     Active Substance: GLIPIZIDE
  8. FUROSEMIDE. [Concomitant]
     Active Substance: FUROSEMIDE
  9. LEVOFLOXACIN. [Concomitant]
     Active Substance: LEVOFLOXACIN

REACTIONS (4)
  - Renal failure [Unknown]
  - Chronic kidney disease [Unknown]
  - Renal injury [Unknown]
  - Rebound acid hypersecretion [Unknown]
